FAERS Safety Report 15206502 (Version 1)
Quarter: 2018Q3

REPORT INFORMATION
  Report Type: Report from Study
  Country: BR (occurrence: BR)
  Receive Date: 20180727
  Receipt Date: 20180727
  Transmission Date: 20181010
  Serious: Yes (Other)
  Sender: FDA-Public Use
  Company Number: BR-EMD SERONO-E2B_90052385

PATIENT
  Age: 39 Year
  Sex: Female

DRUGS (4)
  1. REBIF [Suspect]
     Active Substance: INTERFERON BETA-1A
     Dosage: DOSE REDUCED
     Route: 058
     Dates: start: 20180716
  2. REBIF [Suspect]
     Active Substance: INTERFERON BETA-1A
     Indication: MULTIPLE SCLEROSIS
     Route: 058
     Dates: start: 20061009, end: 20180713
  3. CARBAMAZEPINA [Concomitant]
     Active Substance: CARBAMAZEPINE
     Indication: PRODUCT USED FOR UNKNOWN INDICATION
  4. CARBAMAZEPINA [Concomitant]
     Active Substance: CARBAMAZEPINE
     Dosage: DOSE INCREASED

REACTIONS (1)
  - Gamma-glutamyltransferase abnormal [Unknown]

NARRATIVE: CASE EVENT DATE: 201801
